FAERS Safety Report 22080448 (Version 1)
Quarter: 2023Q1

REPORT INFORMATION
  Report Type: Report from Study
  Country: US (occurrence: US)
  Receive Date: 20230309
  Receipt Date: 20230309
  Transmission Date: 20230417
  Serious: Yes (Other)
  Sender: FDA-Public Use
  Company Number: US-SEATTLE GENETICS-2019SGN00621

PATIENT
  Age: 70 Year
  Sex: Male
  Weight: 74.2 kg

DRUGS (19)
  1. TISOTUMAB VEDOTIN [Suspect]
     Active Substance: TISOTUMAB VEDOTIN
     Indication: Adenocarcinoma pancreas
     Dosage: 2.0 MG/KG, Q21D
     Route: 042
     Dates: start: 20181226, end: 20190219
  2. INSULIN ASPART [Concomitant]
     Active Substance: INSULIN ASPART
     Indication: Diabetes mellitus
     Dosage: 165 IU, QD
     Route: 058
     Dates: start: 2017
  3. LIPITOR [Concomitant]
     Active Substance: ATORVASTATIN CALCIUM
     Indication: Type V hyperlipidaemia
     Dosage: 1 DF, QAM
     Route: 048
     Dates: start: 20170418
  4. RAMIPRIL [Concomitant]
     Active Substance: RAMIPRIL
     Indication: Hypertension
     Dosage: 1 DF, QAM
     Route: 048
     Dates: start: 20170806
  5. MIRALAX [Concomitant]
     Active Substance: POLYETHYLENE GLYCOL 3350
     Indication: Constipation prophylaxis
     Dosage: 1 DF, PRN
     Route: 048
     Dates: start: 2018
  6. LATANOPROST [Concomitant]
     Active Substance: LATANOPROST
     Indication: Glaucoma
     Dosage: UNK, QHS
     Route: 047
     Dates: start: 20180622
  7. KENALOG [Concomitant]
     Active Substance: TRIAMCINOLONE ACETONIDE
     Indication: Rash maculo-papular
     Dosage: UNK, BID
     Route: 061
     Dates: start: 20180803, end: 20190311
  8. KENALOG [Concomitant]
     Active Substance: TRIAMCINOLONE ACETONIDE
     Indication: Stomatitis
     Dosage: UNK
     Route: 061
     Dates: start: 20190228
  9. SODIUM CHLORIDE [Concomitant]
     Active Substance: SODIUM CHLORIDE
     Indication: Fluid replacement
     Dosage: 50 ML/HR IV INFUSION, PRN
     Route: 042
     Dates: start: 20180921
  10. CREON [Concomitant]
     Active Substance: PANCRELIPASE AMYLASE\PANCRELIPASE LIPASE\PANCRELIPASE PROTEASE
     Indication: Malabsorption
     Dosage: 1?3 CAPSULES BY MOUTH TID WITH MEALS + 1 CAPSULE BID WITH SNACKS
     Route: 048
     Dates: start: 20181018
  11. OLANZAPINE [Concomitant]
     Active Substance: OLANZAPINE
     Indication: Nausea
     Dosage: 1 DF, QHS
     Route: 048
     Dates: start: 20181206
  12. CARBOXYMETHYLCELLULOSE [Concomitant]
     Active Substance: CARBOXYMETHYLCELLULOSE
     Indication: Prophylaxis
     Dosage: UNK, PRN
     Route: 047
     Dates: start: 20181226
  13. BACITRACIN [Concomitant]
     Active Substance: BACITRACIN
     Indication: Blepharitis
     Dosage: UNK, QHS
     Route: 047
     Dates: start: 20190102, end: 20190312
  14. FLUOROMETHOLONE ACETATE [Concomitant]
     Active Substance: FLUOROMETHOLONE ACETATE
     Indication: Blepharitis
     Dosage: UNK, BID
     Route: 047
     Dates: start: 20190115
  15. CALCIUM CITRATE [Concomitant]
     Active Substance: CALCIUM CITRATE
     Indication: Mineral supplementation
     Dosage: 1 DF, BID
     Route: 048
     Dates: start: 20190115
  16. TYLENOL PM EXTRA STRENGTH [Concomitant]
     Active Substance: ACETAMINOPHEN\DIPHENHYDRAMINE HYDROCHLORIDE
     Indication: Insomnia
     Dosage: 2 DF, PRN
     Route: 048
     Dates: start: 20190116
  17. TYLENOL                            /00020001/ [Concomitant]
     Indication: Pain prophylaxis
  18. TYLENOL                            /00020001/ [Concomitant]
     Indication: Pyrexia
  19. DRONABINOL [Concomitant]
     Active Substance: DRONABINOL
     Indication: Decreased appetite
     Dosage: 1 DF, BID
     Route: 048
     Dates: start: 20190212

REACTIONS (2)
  - Muscular weakness [Not Recovered/Not Resolved]
  - Conjunctivitis [Recovered/Resolved]

NARRATIVE: CASE EVENT DATE: 20190312
